FAERS Safety Report 10436306 (Version 1)
Quarter: 2014Q3

REPORT INFORMATION
  Report Type: Spontaneous
  Country: US (occurrence: None)
  Receive Date: 20140905
  Receipt Date: 20140905
  Transmission Date: 20150326
  Serious: Yes (Hospitalization)
  Sender: FDA-Public Use
  Company Number: None

PATIENT
  Age: 91 Year
  Sex: Male
  Weight: 69 kg

DRUGS (2)
  1. HEPARIN [Suspect]
     Active Substance: HEPARIN SODIUM
     Route: 042
     Dates: start: 20140801, end: 20140803
  2. ASPIRIN. [Suspect]
     Active Substance: ASPIRIN
     Indication: ATRIAL FIBRILLATION
     Route: 048
     Dates: start: 20100514, end: 20140806

REACTIONS (10)
  - Renal failure acute [None]
  - Calculus bladder [None]
  - Urinary bladder haemorrhage [None]
  - Haemorrhagic anaemia [None]
  - Haematuria [None]
  - Hypotension [None]
  - Post procedural haemorrhage [None]
  - Leukocytosis [None]
  - General physical health deterioration [None]
  - Platelet disorder [None]

NARRATIVE: CASE EVENT DATE: 20140801
